FAERS Safety Report 14662493 (Version 2)
Quarter: 2018Q2

REPORT INFORMATION
  Report Type: Spontaneous
  Country: JP (occurrence: JP)
  Receive Date: 20180321
  Receipt Date: 20180606
  Transmission Date: 20180711
  Serious: Yes (Hospitalization, Other)
  Sender: FDA-Public Use
  Company Number: JP-AMGEN-JPNSP2018037825

PATIENT
  Age: 76 Year
  Sex: Female
  Weight: 59.3 kg

DRUGS (9)
  1. ENBREL [Suspect]
     Active Substance: ETANERCEPT
     Indication: RHEUMATOID ARTHRITIS
     Dosage: 50 MG, QWK
     Route: 058
     Dates: start: 20161020
  2. LOCHOL                             /00638501/ [Concomitant]
     Active Substance: FLUVASTATIN SODIUM
     Dosage: 20 MG, QD, AFTER BREAKFAST
  3. SIGMART [Concomitant]
     Active Substance: NICORANDIL
     Dosage: 5 MG, TID, AFTER MEAL
  4. FUROSEMIDE. [Concomitant]
     Active Substance: FUROSEMIDE
     Dosage: 5 MG, QD, AFTER BREAKFAST
  5. EBRANTIL                           /00631801/ [Concomitant]
     Active Substance: URAPIDIL
     Dosage: 15 MG, BID, AFTER BREAKFAST AND AFTER DINNER
  6. HERBESSER [Concomitant]
     Active Substance: DILTIAZEM HYDROCHLORIDE
     Dosage: 30 MG, TID, AFTER MEAL
  7. BLOSTAR M [Concomitant]
     Dosage: 20 MG, BID, AFTER BREAKFAST AND AFTER DINNER
  8. NORVASC [Concomitant]
     Active Substance: AMLODIPINE BESYLATE
     Dosage: 5 MG, QD, AFTER BREAKFAST
  9. ASPARA POTASSIUM [Concomitant]
     Active Substance: POTASSIUM ASPARTATE
     Dosage: 300 MG, TID, AFTER MEAL

REACTIONS (2)
  - Nephrotic syndrome [Not Recovered/Not Resolved]
  - Oedema peripheral [Unknown]

NARRATIVE: CASE EVENT DATE: 20180115
